FAERS Safety Report 6855857-1 (Version None)
Quarter: 2010Q3

REPORT INFORMATION
  Report Type: 
  Country: None (occurrence: None)
  Receive Date: 20100715
  Receipt Date: 20100715
  Transmission Date: 20110219
  Serious: Yes (Hospitalization)
  Sender: FDA-Public Use
  Company Number: None

PATIENT
  Age: 32 Year
  Sex: Female
  Weight: 86.23 kg

DRUGS (1)
  1. SERTRALINE HYDROCHLORIDE [Suspect]
     Indication: DEPRESSION
     Dosage: 100 MG EVERY DAY PO
     Route: 048
     Dates: start: 20100115, end: 20100307

REACTIONS (11)
  - AFFECT LABILITY [None]
  - AGITATION [None]
  - ANGER [None]
  - ANXIETY [None]
  - CLUTTERING [None]
  - FEAR [None]
  - INSOMNIA [None]
  - MOOD SWINGS [None]
  - PRESSURE OF SPEECH [None]
  - TACHYPHRENIA [None]
  - VIOLENCE-RELATED SYMPTOM [None]
